FAERS Safety Report 7471757-0 (Version None)
Quarter: 2011Q2

REPORT INFORMATION
  Report Type: 
  Country: None (occurrence: None)
  Receive Date: 20110511
  Receipt Date: 20100325
  Transmission Date: 20111010
  Serious: No
  Sender: FDA-Public Use
  Company Number: A0852425A

PATIENT
  Sex: Female

DRUGS (2)
  1. TYKERB [Suspect]
     Indication: BREAST CANCER
     Dosage: 1000MGD PER DAY
     Route: 048
     Dates: start: 20080301, end: 20100430
  2. ALLERGY SHOT [Suspect]

REACTIONS (6)
  - FACIAL SPASM [None]
  - DECREASED APPETITE [None]
  - MUSCLE SPASMS [None]
  - VOMITING [None]
  - WEIGHT DECREASED [None]
  - NAUSEA [None]
